FAERS Safety Report 5534111-4 (Version None)
Quarter: 2007Q4

REPORT INFORMATION
  Report Type: 
  Country: None (occurrence: None)
  Receive Date: 20071130
  Receipt Date: 20071120
  Transmission Date: 20080405
  Serious: Yes (Hospitalization)
  Sender: FDA-Public Use
  Company Number: 2007-167344-NL

PATIENT
  Age: 70 Year
  Sex: Male

DRUGS (9)
  1. MIRTAZAPINE [Suspect]
     Indication: AFFECTIVE DISORDER
     Dosage: 15 MG QD ORAL
     Route: 048
     Dates: start: 20070515, end: 20070907
  2. PRAMIPEXOLE DIHYDROCHLORIDE [Suspect]
     Dosage: ORAL
     Route: 048
     Dates: start: 20070706
  3. STALEVO 100 [Concomitant]
  4. BROMAZEPAM [Concomitant]
  5. DOMPERIDONE [Concomitant]
  6. OMEPRAZOLE [Concomitant]
  7. LERCANIDIPINE [Concomitant]
  8. DISTIGMINE BROMIDE [Concomitant]
  9. COSOPT [Concomitant]

REACTIONS (3)
  - CROSS SENSITIVITY REACTION [None]
  - GENERAL PHYSICAL HEALTH DETERIORATION [None]
  - INAPPROPRIATE ANTIDIURETIC HORMONE SECRETION [None]
